FAERS Safety Report 8556945-4 (Version None)
Quarter: 2012Q3

REPORT INFORMATION
  Report Type: 
  Country: None (occurrence: None)
  Receive Date: 20120801
  Receipt Date: 20120724
  Transmission Date: 20120928
  Serious: Yes (Other)
  Sender: FDA-Public Use
  Company Number: US-BAYER-2012-048723

PATIENT
  Age: 23 Year
  Sex: Female

DRUGS (1)
  1. MIRENA [Suspect]
     Indication: CONTRACEPTION
     Dosage: 20 MCG/24HR, CONT
     Route: 015
     Dates: start: 20101228, end: 20111227

REACTIONS (5)
  - PREMATURE LABOUR [None]
  - PREGNANCY WITH CONTRACEPTIVE DEVICE [None]
  - HAEMORRHAGE IN PREGNANCY [None]
  - PELVIC PAIN [None]
  - DEVICE EXPULSION [None]
